FAERS Safety Report 4932417-0 (Version None)
Quarter: 2006Q1

REPORT INFORMATION
  Report Type: 
  Country: None (occurrence: None)
  Receive Date: 20060301
  Receipt Date: 20060221
  Transmission Date: 20060701
  Serious: Yes (Hospitalization, Disabling)
  Sender: FDA-Public Use
  Company Number: 2005-12-0604

PATIENT
  Age: 49 Year
  Sex: Male
  Weight: 70 kg

DRUGS (1)
  1. INTRON A (INTERFERON AFLA-2B RECOMBINANT) INJECTABLE POWDER [Suspect]
     Indication: HEPATITIS C
     Dosage: 3 MIU TIW INTRAMUSCULAR
     Dates: start: 20040122, end: 20051208

REACTIONS (2)
  - PUTAMEN HAEMORRHAGE [None]
  - YAWNING [None]
